FAERS Safety Report 9581235 (Version 5)
Quarter: 2014Q1

REPORT INFORMATION
  Report Type: Report from Study
  Country: BR (occurrence: BR)
  Receive Date: 20131002
  Receipt Date: 20140210
  Transmission Date: 20141002
  Serious: Yes (Hospitalization, Other)
  Sender: FDA-Public Use
  Company Number: PHHO2013BR012388

PATIENT
  Age: 42 Year
  Sex: Female
  Weight: 73 kg

DRUGS (4)
  1. GP2013 [Suspect]
     Indication: NON-HODGKIN^S LYMPHOMA
     Dosage: 687.71 MG, UNK
     Route: 042
     Dates: start: 20130403
  2. VINCRISTINE [Suspect]
     Indication: CHEMOTHERAPY
     Dosage: 2 MG
     Route: 042
     Dates: start: 20130403
  3. PREDNISONE [Suspect]
     Indication: CHEMOTHERAPY
     Dosage: 100 MG, UNK
     Route: 048
     Dates: start: 20130403
  4. CYCLOPHOSPHAMIDE [Suspect]
     Indication: CHEMOTHERAPY
     Dosage: 1380 MG, UNK
     Route: 042
     Dates: start: 20130403

REACTIONS (3)
  - Nephrolithiasis [Unknown]
  - Pyelonephritis [Recovered/Resolved]
  - Cholelithiasis [Recovered/Resolved]
